FAERS Safety Report 9457633 (Version 1)
Quarter: 2013Q3

REPORT INFORMATION
  Report Type: Spontaneous
  Country: DE (occurrence: None)
  Receive Date: 20130812
  Receipt Date: 20130812
  Transmission Date: 20140515
  Serious: Yes (Hospitalization)
  Sender: FDA-Public Use
  Company Number: AG-2012-1430

PATIENT
  Age: 63 Year
  Sex: Male
  Weight: 90 kg

DRUGS (12)
  1. CHLORAMBUCIL [Suspect]
     Indication: CHRONIC LYMPHOCYTIC LEUKAEMIA
     Dosage: D1+D15/28D (44 MILLIGRAM, LAST DOSE PRIOR TO EVENT 14 FEB 2012), ORAL
     Route: 048
     Dates: start: 20110927, end: 20120306
  2. OBINULTUZUMAB [Suspect]
     Indication: CHRONIC LYMPHOCYTIC LEUKAEMIA
     Dosage: LAST DOSE PRIOR TO EVENT 14 FEB 2012 (1000 MILLIGRAM), INTRAVENOUS (NOT OTHERWISE SPECIFIED)
     Route: 042
     Dates: start: 20110926
  3. ASS [Concomitant]
  4. LOSARTAN (LOSARTAN) [Concomitant]
  5. METO (METOPRLOL) [Concomitant]
  6. SIMVASTATIN (SMVASTATIN) [Concomitant]
  7. PANTAZOL (PANTOPRAZOLE) [Concomitant]
  8. PARACETAMOL (PARACETAMOL) [Concomitant]
  9. DEXAMETHASONE (DEXAMETHASONE) [Concomitant]
  10. VERGETAN (ALIZAPRIDE) [Concomitant]
  11. TAVEGIL (CLEMASTINE) [Concomitant]
  12. CITALOPRAM (CITALOPRAM) [Concomitant]

REACTIONS (5)
  - Pancreatitis acute [None]
  - Liver abscess [None]
  - Myalgia [None]
  - Fatigue [None]
  - Bone pain [None]
